FAERS Safety Report 9433484 (Version 1)
Quarter: 2013Q3

REPORT INFORMATION
  Report Type: Spontaneous
  Country: AU (occurrence: AU)
  Receive Date: 20130731
  Receipt Date: 20130731
  Transmission Date: 20140515
  Serious: No
  Sender: FDA-Public Use
  Company Number: PHHY2013AU049745

PATIENT
  Sex: Female

DRUGS (1)
  1. NYOGEL [Suspect]
     Dosage: 1 GTT, (INTO BOTH EYES DAILY)
     Route: 047

REACTIONS (1)
  - Eye pain [Recovering/Resolving]
